FAERS Safety Report 21341211 (Version 1)
Quarter: 2022Q3

REPORT INFORMATION
  Report Type: Spontaneous
  Country: US (occurrence: US)
  Receive Date: 20220916
  Receipt Date: 20220916
  Transmission Date: 20221026
  Serious: Yes (Death, Other)
  Sender: FDA-Public Use
  Company Number: US-CIPLA LTD.-2022US05503

PATIENT
  Age: 76 Year
  Sex: Male

DRUGS (2)
  1. DECITABINE [Suspect]
     Active Substance: DECITABINE
     Indication: Blastic plasmacytoid dendritic cell neoplasia
     Dosage: 20 MG/M2 (3 CYCLES)
     Route: 065
  2. VENETOCLAX [Suspect]
     Active Substance: VENETOCLAX
     Indication: Blastic plasmacytoid dendritic cell neoplasia
     Dosage: 100 MG (3 CYCLES)
     Route: 065

REACTIONS (3)
  - Pneumonia aspiration [Fatal]
  - Septic shock [Fatal]
  - Gastrointestinal haemorrhage [Unknown]
